FAERS Safety Report 14521340 (Version 3)
Quarter: 2018Q1

REPORT INFORMATION
  Report Type: Spontaneous
  Country: CH (occurrence: CH)
  Receive Date: 20180212
  Receipt Date: 20180227
  Transmission Date: 20180509
  Serious: Yes (Death, Hospitalization, Other)
  Sender: FDA-Public Use
  Company Number: CH-PFIZER INC-2018053606

PATIENT
  Age: 91 Year
  Sex: Male

DRUGS (14)
  1. RAMIPRIL HCT [Interacting]
     Active Substance: HYDROCHLOROTHIAZIDE\RAMIPRIL
     Indication: HYPERTENSION
     Dosage: 1.25 MG, 1X/DAY (HALF TABLET IN THE MORNING; 0.5-0-0)
     Dates: end: 20180114
  2. MARCOUMAR [Interacting]
     Active Substance: PHENPROCOUMON
     Indication: ATRIAL FIBRILLATION
     Dosage: 3 MG, ACCORDING TO INR AT NIGHT
     Dates: end: 20180114
  3. ALDACTONE [Suspect]
     Active Substance: SPIRONOLACTONE
     Indication: HYPERTENSION
     Dosage: 100 MG, 1X/DAY IN THE MORNING (1-0-0)
     Dates: end: 20180114
  4. BELOC ZOK [Concomitant]
     Active Substance: METOPROLOL SUCCINATE
     Dosage: 100 MG, 2X/DAY IN THE MORNING AND IN THE EVENING (1-0-1)
     Dates: end: 20180114
  5. PERENTEROL [Concomitant]
     Active Substance: SACCHAROMYCES CEREVISIAE
     Dosage: 250 MG, AS NEEDED
     Dates: end: 20180114
  6. PARACETAMOL [Interacting]
     Active Substance: ACETAMINOPHEN
     Dosage: 500 MG, AS NEEDED
     Dates: end: 20180114
  7. CO-AMOXI [Concomitant]
     Active Substance: AMOXICILLIN\CLAVULANATE POTASSIUM
     Dosage: 1000 MG, 2X/DAY IN THE MORNING AND IN THE EVENING (1-0-1)
     Dates: start: 20180104, end: 20180114
  8. MOTILIUM [Concomitant]
     Active Substance: DOMPERIDONE
     Dosage: 10 MG, AS NEEDED
     Dates: end: 20180114
  9. ZALDIAR [Concomitant]
     Active Substance: ACETAMINOPHEN\TRAMADOL HYDROCHLORIDE
     Dosage: 1 DF, AS NEEDED
     Dates: end: 20180114
  10. NEOCITRAN HUSTENLOESER [Concomitant]
     Dosage: 20 GTT, AS NEEDED
     Dates: end: 20180114
  11. DIGOXIN. [Concomitant]
     Active Substance: DIGOXIN
     Dosage: 0.125 MG, 1X/DAY IN THE MORNING (1-0-0)
     Dates: end: 20180114
  12. TORASEMID [Concomitant]
     Active Substance: TORSEMIDE
     Dosage: 10 MG, 2X/DAY IN THE MORNING AND IN THE EVENING (1-0-1)
     Dates: end: 20180114
  13. STILNOX [Concomitant]
     Active Substance: ZOLPIDEM TARTRATE
     Dosage: 5 MG, 1X/DAY AT NIGHT
     Dates: end: 20180114
  14. ZOLPIDEM [Concomitant]
     Active Substance: ZOLPIDEM\ZOLPIDEM TARTRATE
     Dosage: 10 MG, AS NEEDED
     Dates: end: 20180114

REACTIONS (20)
  - Pneumonia aspiration [Unknown]
  - Activated partial thromboplastin time prolonged [Unknown]
  - Aortic dilatation [Unknown]
  - Gastrointestinal haemorrhage [Fatal]
  - Arteriosclerosis coronary artery [Unknown]
  - International normalised ratio increased [Fatal]
  - Hyperkalaemia [Fatal]
  - Coagulation factor VII level decreased [Unknown]
  - Prothrombin level decreased [Unknown]
  - Drug interaction [Fatal]
  - Drug interaction [Fatal]
  - Protein total decreased [Unknown]
  - Aortic arteriosclerosis [Unknown]
  - Pleural effusion [Unknown]
  - Oxygen saturation decreased [Unknown]
  - Cardioactive drug level increased [Unknown]
  - Anaemia [Unknown]
  - Cardiomegaly [Unknown]
  - Blood albumin decreased [Unknown]
  - Thrombin time prolonged [Unknown]

NARRATIVE: CASE EVENT DATE: 2017
